FAERS Safety Report 6798118-1 (Version None)
Quarter: 2010Q2

REPORT INFORMATION
  Report Type: 
  Country: None (occurrence: None)
  Receive Date: 20100623
  Receipt Date: 20100608
  Transmission Date: 20101027
  Serious: Yes (Death)
  Sender: FDA-Public Use
  Company Number: AMAG201000246

PATIENT
  Age: 76 Year
  Sex: Female
  Weight: 83.6 kg

DRUGS (11)
  1. FERAHEME [Suspect]
     Indication: IRON DEFICIENCY ANAEMIA
     Dosage: 510 MG, SINGLE, INTRAVENOUS
     Route: 042
     Dates: start: 20100521, end: 20100521
  2. FERAHEME [Suspect]
     Indication: RENAL FAILURE CHRONIC
     Dosage: 510 MG, SINGLE, INTRAVENOUS
     Route: 042
     Dates: start: 20100521, end: 20100521
  3. METOLAZONE [Concomitant]
  4. BUMEX [Concomitant]
  5. INSULIN (INSULIN) [Concomitant]
  6. KCI (POTASSIUM CHLORIDE) [Concomitant]
  7. HYDROXYCHLOROQUINE (HYDROXYCHLOROQUINE SULFATE) [Concomitant]
  8. PROTONIX [Concomitant]
  9. CARVEDILOL [Concomitant]
  10. CLONAZEPAM [Concomitant]
  11. FERROUS SULFATE TAB [Concomitant]

REACTIONS (4)
  - AGONAL RHYTHM [None]
  - CARDIO-RESPIRATORY ARREST [None]
  - HYPOTENSION [None]
  - INFUSION RELATED REACTION [None]
